FAERS Safety Report 5513731-7 (Version None)
Quarter: 2007Q4

REPORT INFORMATION
  Report Type: 
  Country: None (occurrence: None)
  Receive Date: 20071113
  Receipt Date: 20071108
  Transmission Date: 20080405
  Serious: Yes (Life-Threatening, Hospitalization, Other)
  Sender: FDA-Public Use
  Company Number: PHBS2007BR18752

PATIENT
  Age: 45 Year
  Sex: Female
  Weight: 75 kg

DRUGS (6)
  1. FORASEQ [Suspect]
     Indication: ASTHMA
     Dosage: FORM 12 / BUDE 400 UG, BID
     Dates: start: 20000101
  2. PREDNISONE [Concomitant]
     Indication: NASAL CONGESTION
  3. SODIUM CHLORIDE [Concomitant]
  4. NEOSORO [Concomitant]
     Route: 045
  5. CONTRACEPTIVES NOS [Concomitant]
  6. ANESTHETICS NOS [Concomitant]

REACTIONS (4)
  - BRONCHOSPASM [None]
  - FEELING ABNORMAL [None]
  - NASAL CONGESTION [None]
  - NASAL POLYPECTOMY [None]
